FAERS Safety Report 24551336 (Version 2)
Quarter: 2024Q4

REPORT INFORMATION
  Report Type: Report from Study
  Country: US (occurrence: US)
  Receive Date: 20241025
  Receipt Date: 20241107
  Transmission Date: 20250114
  Serious: Yes (Other)
  Sender: ABBVIE
  Company Number: US-ABBVIE-5975510

PATIENT
  Age: 41 Year
  Sex: Female
  Weight: 65.77 kg

DRUGS (4)
  1. CREON [Suspect]
     Active Substance: PANCRELIPASE AMYLASE\PANCRELIPASE LIPASE\PANCRELIPASE PROTEASE
     Indication: Pancreatic failure
     Dosage: FORM STRENGTH 36000 DOSAGE FORM, FREQUENCY TEXT 2-4 CAPSULE PER MEAL: 1-2 PER SNACK
     Route: 048
     Dates: start: 202405, end: 202410
  2. CREON [Suspect]
     Active Substance: PANCRELIPASE AMYLASE\PANCRELIPASE LIPASE\PANCRELIPASE PROTEASE
     Indication: Pancreatic failure
     Dosage: FORM STRENGTH 36000 DOSAGE FORM, FREQUENCY TEXT 2-4 CAPSULE PER MEAL: 1-2 PER SNACK
     Route: 048
     Dates: start: 202410
  3. FLEXERIL [Concomitant]
     Active Substance: CYCLOBENZAPRINE HYDROCHLORIDE
     Indication: Back pain
  4. PROGESTERONE [Concomitant]
     Active Substance: PROGESTERONE
     Indication: Progesterone decreased

REACTIONS (8)
  - May-Thurner syndrome [Not Recovered/Not Resolved]
  - Polyp [Recovered/Resolved]
  - Pancreatic disorder [Unknown]
  - Abdominal distension [Recovering/Resolving]
  - Abdominal discomfort [Recovering/Resolving]
  - Abdominal pain upper [Recovering/Resolving]
  - Vascular compression [Unknown]
  - Thrombosis [Unknown]

NARRATIVE: CASE EVENT DATE: 20240101
